FAERS Safety Report 15342931 (Version 1)
Quarter: 2018Q3

REPORT INFORMATION
  Report Type: Report from Study
  Country: US (occurrence: US)
  Receive Date: 20180903
  Receipt Date: 20180903
  Transmission Date: 20181010
  Serious: Yes (Disabling, Other)
  Sender: FDA-Public Use
  Company Number: US-HORIZON-KRY-0078-2018

PATIENT
  Age: 75 Year
  Sex: Male

DRUGS (1)
  1. KRYSTEXXA [Suspect]
     Active Substance: PEGLOTICASE
     Indication: GOUT
     Dosage: 8MG EVERY 2 WEEKS
     Dates: start: 20180129

REACTIONS (4)
  - Fall [Unknown]
  - Hip fracture [Unknown]
  - Blindness [Unknown]
  - Gout [Recovering/Resolving]

NARRATIVE: CASE EVENT DATE: 20180128
